FAERS Safety Report 4976514-2 (Version None)
Quarter: 2006Q2

REPORT INFORMATION
  Report Type: 
  Country: None (occurrence: None)
  Receive Date: 20060410
  Receipt Date: 20060327
  Transmission Date: 20061013
  Serious: Yes (Other)
  Sender: FDA-Public Use
  Company Number: 200610095BBE

PATIENT
  Sex: Female

DRUGS (1)
  1. HYPRHO-D [Suspect]

REACTIONS (10)
  - DEVELOPMENTAL DELAY [None]
  - DRUG EXPOSURE DURING PREGNANCY [None]
  - GASTROINTESTINAL DISORDER [None]
  - IMMUNE SYSTEM DISORDER [None]
  - LEARNING DISABILITY [None]
  - METAL POISONING [None]
  - MOTOR DYSFUNCTION [None]
  - NERVOUS SYSTEM DISORDER [None]
  - PHARMACEUTICAL PRODUCT COMPLAINT [None]
  - SOCIAL PROBLEM [None]
